FAERS Safety Report 18682176 (Version 1)
Quarter: 2020Q4

REPORT INFORMATION
  Report Type: Other
  Country: ES (occurrence: ES)
  Receive Date: 20201230
  Receipt Date: 20201230
  Transmission Date: 20210114
  Serious: Yes (Hospitalization)
  Sender: FDA-Public Use
  Company Number: ES-CADILA HEALTHCARE LIMITED-ES-ZYDUS-060302

PATIENT

DRUGS (5)
  1. ACETYLSALICYLIC ACID [Concomitant]
     Active Substance: ASPIRIN
     Indication: PRODUCT USED FOR UNKNOWN INDICATION
     Dosage: 300 MILLIGRAM
     Route: 048
     Dates: start: 20201119, end: 20201119
  2. ENOXAPARINA SODICA [Interacting]
     Active Substance: ENOXAPARIN SODIUM
     Indication: PULMONARY ARTERY THROMBOSIS
     Dosage: 60 MILLIGRAM, QD
     Route: 058
     Dates: start: 20201119, end: 20201124
  3. CLOPIDOGREL [Suspect]
     Active Substance: CLOPIDOGREL BISULFATE
     Indication: DRUG DELIVERY DEVICE PLACEMENT
     Dosage: 75 MILLIGRAM, QD
     Route: 048
     Dates: start: 20201120
  4. ACETYLSALICYLIC ACID [Interacting]
     Active Substance: ASPIRIN
     Indication: DRUG DELIVERY DEVICE PLACEMENT
     Dosage: 100 MILLIGRAM, QD
     Route: 048
     Dates: start: 20201119
  5. ATORVASTATIN [Concomitant]
     Active Substance: ATORVASTATIN
     Indication: PROPHYLAXIS
     Dosage: 80 MILLIGRAM
     Route: 048
     Dates: start: 20201120

REACTIONS (2)
  - Catheter site haematoma [Recovering/Resolving]
  - Paraesthesia [Recovered/Resolved]

NARRATIVE: CASE EVENT DATE: 20201121
